FAERS Safety Report 4366484-2 (Version None)
Quarter: 2004Q2

REPORT INFORMATION
  Report Type: 
  Country: None (occurrence: None)
  Receive Date: 20040527
  Receipt Date: 20040419
  Transmission Date: 20050107
  Serious: No
  Sender: FDA-Public Use
  Company Number: US-BRISTOL-MYERS SQUIBB COMPANY-12564464

PATIENT
  Age: 70 Year
  Sex: Male

DRUGS (19)
  1. ERBITUX [Suspect]
     Indication: COLON CANCER METASTATIC
     Dosage: FIRST INFUSION 08APR04(800 MG),2ND DOSE 15APR04 (400MG),3RD DOSE 22APR04 (300MG)
     Route: 042
     Dates: start: 20040415, end: 20040415
  2. IRINOTECAN [Concomitant]
     Dates: start: 20040408, end: 20040408
  3. LEUCOVORIN CALCIUM [Concomitant]
     Dates: start: 20040408, end: 20040408
  4. FLUOROURACIL [Concomitant]
     Dates: start: 20040408, end: 20040408
  5. BENADRYL [Concomitant]
     Indication: PREMEDICATION
     Dosage: PRE-MED. BEFORE THE 1ST AND 2ND INFUSION
     Route: 042
  6. PEPCID [Concomitant]
     Indication: PREMEDICATION
     Dosage: PRE-MED. BEFORE 1ST AND 2ND DOSE
     Route: 048
  7. DECADRON [Concomitant]
     Indication: PREMEDICATION
     Dosage: PRE-MED. BEFORE 1ST INFUSION
     Route: 042
  8. ANZEMET [Concomitant]
     Indication: PREMEDICATION
     Dosage: PRE-MED. BEFORE 1ST INFUSION
     Route: 042
  9. PLAVIX [Concomitant]
     Dosage: TAKEN DAILR FOR ^A WHILE^
  10. ATENOLOL [Concomitant]
     Dosage: TAKEN DAILY FOR ^A WHILE^
  11. LESCOL [Concomitant]
     Dosage: TAKEN DAILY FOR ^A WHILE^
  12. SINGULAIR [Concomitant]
     Dosage: TAKEN DAILY FOR ^A WHILE^
  13. TRIAMCINOLONE [Concomitant]
     Dosage: TAKEN DAILY FOR ^A WHILE^
  14. PROBENECID [Concomitant]
     Dosage: TAKEN DAILY FOR ^A WHILE^
  15. ASPIRIN [Concomitant]
     Dosage: STARTED ^RECENTLY^
  16. QUININE SULFATE [Concomitant]
     Dosage: STARTED ^RECENTLY^
  17. COMPAZINE [Concomitant]
  18. VICODIN [Concomitant]
  19. LOMOTIL [Concomitant]

REACTIONS (4)
  - ACNE [None]
  - BLOOD BLISTER [None]
  - PHARYNGOLARYNGEAL PAIN [None]
  - RASH [None]
